FAERS Safety Report 16677141 (Version 2)
Quarter: 2020Q2

REPORT INFORMATION
  Report Type: Spontaneous
  Country: US (occurrence: US)
  Receive Date: 20190807
  Receipt Date: 20200414
  Transmission Date: 20200713
  Serious: Yes (Hospitalization, Disabling, Other)
  Sender: FDA-Public Use
  Company Number: US-ASTRAZENECA-2019SF09582

PATIENT
  Age: 15064 Day
  Sex: Male
  Weight: 68 kg

DRUGS (32)
  1. PREVACID 24 HR [Suspect]
     Active Substance: LANSOPRAZOLE
     Route: 065
     Dates: start: 201003, end: 201106
  2. AMLODIPINE [Concomitant]
     Active Substance: AMLODIPINE BESYLATE
     Indication: BLOOD PRESSURE ABNORMAL
     Dates: start: 201308, end: 201709
  3. LEVETIRACETAM. [Concomitant]
     Active Substance: LEVETIRACETAM
  4. ALLOPURINOL. [Concomitant]
     Active Substance: ALLOPURINOL
     Indication: GOUT
     Dates: start: 201203, end: 201206
  5. CALCIUM [Concomitant]
     Active Substance: CALCIUM
  6. PRILOSEC OTC [Suspect]
     Active Substance: OMEPRAZOLE MAGNESIUM
     Indication: GASTROOESOPHAGEAL REFLUX DISEASE
     Route: 048
     Dates: start: 2010, end: 2013
  7. BENZONATATE. [Concomitant]
     Active Substance: BENZONATATE
     Indication: COUGH
     Dates: start: 201003, end: 201111
  8. LISINOPRIL. [Concomitant]
     Active Substance: LISINOPRIL
     Indication: BLOOD PRESSURE ABNORMAL
     Dates: start: 201311, end: 201405
  9. TYLENOL [Concomitant]
     Active Substance: ACETAMINOPHEN
     Dates: start: 202002
  10. ACETAMINOPHENE [Concomitant]
     Active Substance: ACETAMINOPHEN
  11. CLINDAMYCIN. [Concomitant]
     Active Substance: CLINDAMYCIN
  12. BUSPIRONE [Concomitant]
     Active Substance: BUSPIRONE HYDROCHLORIDE
     Indication: MOOD ALTERED
     Dates: start: 201312, end: 201401
  13. LISINOPRIL. [Concomitant]
     Active Substance: LISINOPRIL
  14. PREVACID 24 HR [Suspect]
     Active Substance: LANSOPRAZOLE
     Route: 065
     Dates: start: 2010, end: 2013
  15. CHLORHEXIDINE [Concomitant]
     Active Substance: CHLORHEXIDINE
  16. SERTRALINE [Concomitant]
     Active Substance: SERTRALINE HYDROCHLORIDE
  17. CEPHALEXIN. [Concomitant]
     Active Substance: CEPHALEXIN
  18. COUMADIN [Concomitant]
     Active Substance: WARFARIN SODIUM
  19. LEVETIRACETAM. [Concomitant]
     Active Substance: LEVETIRACETAM
     Indication: SEIZURE
     Dates: start: 201310, end: 201703
  20. PAROXETINE. [Concomitant]
     Active Substance: PAROXETINE
     Indication: MOOD ALTERED
     Dates: start: 201401, end: 201403
  21. MIRTAZAPINE. [Concomitant]
     Active Substance: MIRTAZAPINE
  22. CLONAZEPAM. [Concomitant]
     Active Substance: CLONAZEPAM
  23. RENVELA [Concomitant]
     Active Substance: SEVELAMER CARBONATE
  24. ABILIFY [Concomitant]
     Active Substance: ARIPIPRAZOLE
     Indication: MOOD ALTERED
     Dates: start: 201404, end: 201406
  25. OXYCODONE [Concomitant]
     Active Substance: OXYCODONE
  26. FUROSEMIDE. [Concomitant]
     Active Substance: FUROSEMIDE
  27. GENTAMICIN. [Concomitant]
     Active Substance: GENTAMICIN
  28. PRILOSEC OTC [Suspect]
     Active Substance: OMEPRAZOLE MAGNESIUM
     Indication: GASTROOESOPHAGEAL REFLUX DISEASE
     Route: 048
     Dates: start: 201001, end: 201306
  29. WARFARIN [Concomitant]
     Active Substance: WARFARIN
     Indication: ANTICOAGULANT THERAPY
     Dates: start: 201308, end: 201402
  30. ZANTAC [Concomitant]
     Active Substance: RANITIDINE HYDROCHLORIDE
     Dosage: ZANTAC 150
     Dates: start: 2013, end: 2014
  31. OFLOXACIN. [Concomitant]
     Active Substance: OFLOXACIN
  32. TRILEPTAL [Concomitant]
     Active Substance: OXCARBAZEPINE

REACTIONS (3)
  - Chronic kidney disease [Not Recovered/Not Resolved]
  - Acute kidney injury [Not Recovered/Not Resolved]
  - Renal failure [Unknown]

NARRATIVE: CASE EVENT DATE: 20130912
